FAERS Safety Report 17622664 (Version 2)
Quarter: 2020Q2

REPORT INFORMATION
  Report Type: Report from Study
  Country: BR (occurrence: BR)
  Receive Date: 20200403
  Receipt Date: 20200610
  Transmission Date: 20200713
  Serious: Yes (Hospitalization)
  Sender: FDA-Public Use
  Company Number: BR-BIOGEN-2020BI00856969

PATIENT
  Sex: Female

DRUGS (1)
  1. TYSABRI [Suspect]
     Active Substance: NATALIZUMAB
     Indication: MULTIPLE SCLEROSIS
     Route: 042
     Dates: start: 201606, end: 2018

REACTIONS (4)
  - Hypokinesia [Unknown]
  - Aphasia [Not Recovered/Not Resolved]
  - Liver disorder [Recovered/Resolved]
  - Multiple sclerosis relapse [Unknown]
